FAERS Safety Report 11911001 (Version 2)
Quarter: 2016Q1

REPORT INFORMATION
  Report Type: Report from Study
  Country: US (occurrence: US)
  Receive Date: 20160112
  Receipt Date: 20160219
  Transmission Date: 20160526
  Serious: Yes (Other)
  Sender: FDA-Public Use
  Company Number: US-BAXALTA-2015BLT003272

PATIENT
  Age: 54 Year
  Sex: Female
  Weight: 71.6 kg

DRUGS (1)
  1. HYQVIA [Suspect]
     Active Substance: HUMAN IMMUNOGLOBULIN G\HYALURONIDASE RECOMBINANT HUMAN
     Indication: HYPOGAMMAGLOBULINAEMIA
     Dosage: 10 G, 1X A WEEK, 1ST RAMP UP
     Route: 058
     Dates: start: 20151209

REACTIONS (10)
  - Infusion site infection [Unknown]
  - Infusion site erythema [Unknown]
  - Chills [Recovering/Resolving]
  - Abdominal distension [Recovering/Resolving]
  - Neck pain [Recovering/Resolving]
  - Abdominal tenderness [Recovering/Resolving]
  - Headache [Unknown]
  - Musculoskeletal stiffness [Unknown]
  - Herpes zoster [Unknown]
  - Infusion site swelling [Unknown]

NARRATIVE: CASE EVENT DATE: 20151210
